FAERS Safety Report 21921081 (Version 1)
Quarter: 2023Q1

REPORT INFORMATION
  Report Type: Spontaneous
  Country: FR (occurrence: FR)
  Receive Date: 20230127
  Receipt Date: 20230127
  Transmission Date: 20230418
  Serious: Yes (Hospitalization)
  Sender: FDA-Public Use
  Company Number: FR-MYLANLABS-2023M1009068

PATIENT
  Age: 46 Year
  Sex: Female
  Weight: 70 kg

DRUGS (1)
  1. GLIMEPIRIDE [Suspect]
     Active Substance: GLIMEPIRIDE
     Indication: Product used for unknown indication
     Dosage: 45 MILLIGRAM
     Route: 048

REACTIONS (9)
  - Mydriasis [Unknown]
  - Accidental overdose [Recovering/Resolving]
  - Agitation [Unknown]
  - Prescription drug used without a prescription [Recovering/Resolving]
  - Hypoglycaemia [Recovered/Resolved]
  - Coma [Recovered/Resolved]
  - Seizure [Unknown]
  - Vomiting [Unknown]
  - Toxicity to various agents [Recovering/Resolving]
